FAERS Safety Report 6657751-8 (Version None)
Quarter: 2010Q1

REPORT INFORMATION
  Report Type: 
  Country: None (occurrence: None)
  Receive Date: 20100330
  Receipt Date: 20090401
  Transmission Date: 20100710
  Serious: No
  Sender: FDA-Public Use
  Company Number: US-TYCO HEALTHCARE/MALLINCKRODT-T200900781

PATIENT
  Age: 49 Year
  Sex: Male
  Weight: 66.667 kg

DRUGS (8)
  1. METHADOSE [Suspect]
     Indication: PAIN
     Dosage: 30 MG, QD
     Route: 048
     Dates: start: 20090331
  2. METHADONE [Concomitant]
     Indication: PAIN
     Dosage: 30 MG, QD
     Route: 048
     Dates: start: 20090218
  3. TEMAZEPAM [Concomitant]
     Indication: INSOMNIA
     Dosage: 30 MG, PRN
     Route: 048
  4. ALPRAZOLAM [Concomitant]
     Indication: INSOMNIA
     Dosage: 1 MG, PRN
     Route: 048
  5. ZOFRAN [Concomitant]
     Indication: NAUSEA
     Dosage: UNK
     Route: 048
  6. PROMETHAZINE [Concomitant]
     Indication: NAUSEA
     Dosage: UNK
     Route: 048
  7. COMPAZINE [Concomitant]
     Indication: NAUSEA
     Dosage: UNK
     Route: 048
  8. NEURONTIN [Concomitant]
     Indication: PAIN
     Dosage: 400-1600 MG, PRN
     Route: 048

REACTIONS (4)
  - CONFUSIONAL STATE [None]
  - DEPRESSION [None]
  - DRUG INEFFECTIVE [None]
  - WITHDRAWAL SYNDROME [None]
